FAERS Safety Report 19911956 (Version 2)
Quarter: 2021Q4

REPORT INFORMATION
  Report Type: Spontaneous
  Country: DE (occurrence: DE)
  Receive Date: 20211004
  Receipt Date: 20211006
  Transmission Date: 20220303
  Serious: Yes (Other)
  Sender: FDA-Public Use
  Company Number: None

PATIENT
  Age: 6 Year
  Sex: Female
  Weight: 21.5 kg

DRUGS (1)
  1. VALPROIC ACID [Suspect]
     Active Substance: VALPROIC ACID
     Indication: Product used for unknown indication
     Dosage: 500 MG/D
     Route: 064

REACTIONS (8)
  - Mental impairment [Recovering/Resolving]
  - Emotional disorder [Recovering/Resolving]
  - Disturbance in social behaviour [Recovering/Resolving]
  - Attention deficit hyperactivity disorder [Recovering/Resolving]
  - Foetal exposure during pregnancy [Unknown]
  - Speech disorder developmental [Recovering/Resolving]
  - Developmental delay [Recovering/Resolving]
  - Behaviour disorder [Recovering/Resolving]
